FAERS Safety Report 9764377 (Version 2)
Quarter: 2014Q1

REPORT INFORMATION
  Report Type: Spontaneous
  Country: US (occurrence: US)
  Receive Date: 20131217
  Receipt Date: 20140103
  Transmission Date: 20141002
  Serious: Yes (Hospitalization)
  Sender: FDA-Public Use
  Company Number: US-BIOGENIDEC-2013BI119756

PATIENT
  Age: 43 Year
  Sex: Male

DRUGS (47)
  1. TYSABRI [Suspect]
     Indication: MULTIPLE SCLEROSIS
     Route: 042
     Dates: start: 20111212, end: 20130826
  2. ALBUTEROL [Concomitant]
     Route: 048
  3. ALPRAZOLAM [Concomitant]
     Indication: ANXIETY
     Route: 048
  4. ALPRAZOLAM [Concomitant]
     Indication: POST-TRAUMATIC STRESS DISORDER
     Route: 048
  5. ALPRAZOLAM [Concomitant]
     Indication: ANXIETY
     Route: 048
  6. ALPRAZOLAM [Concomitant]
     Indication: POST-TRAUMATIC STRESS DISORDER
     Route: 048
  7. AMITRIPTYLINE [Concomitant]
     Indication: PAIN
     Route: 048
  8. AMITRIPTYLINE [Concomitant]
     Indication: INSOMNIA
     Route: 048
  9. DICLOFENAC [Concomitant]
     Indication: PAIN
     Route: 048
  10. DICLOFENAC [Concomitant]
     Indication: SWELLING
     Route: 048
  11. DULOXETINE [Concomitant]
     Indication: MOOD SWINGS
     Route: 048
  12. DULOXETINE [Concomitant]
     Indication: MOOD SWINGS
     Route: 048
  13. DULOXETINE [Concomitant]
     Indication: MOOD SWINGS
     Route: 048
  14. GABAPENTIN [Concomitant]
     Indication: PAIN
     Route: 048
  15. HYDROCODONE/ACETAMINOPHEN [Concomitant]
     Indication: PAIN
     Route: 048
  16. HYDROCODONE/ACETAMINOPHEN [Concomitant]
     Indication: PAIN
     Route: 048
  17. LISINOPRIL [Concomitant]
     Route: 048
  18. LORATADINE [Concomitant]
     Route: 048
  19. METHOCARBAMOL [Concomitant]
     Route: 048
  20. METHOCARBAMOL [Concomitant]
     Route: 048
  21. MULTIVITAMIN [Concomitant]
     Route: 048
  22. OMEPRAZOLE [Concomitant]
     Route: 048
  23. SILDENAFIL [Concomitant]
     Indication: ERECTILE DYSFUNCTION
     Route: 048
  24. GINKO [Concomitant]
  25. VITAMIN B COMPLEX [Concomitant]
     Route: 048
  26. ASPIRIN [Concomitant]
     Route: 048
  27. METOPROLOL TARTRATE [Concomitant]
     Route: 048
  28. NITROGLYCERIN [Concomitant]
     Indication: CHEST PAIN
     Route: 060
  29. PRASUGREL [Concomitant]
     Route: 048
  30. PRAZOSIN [Concomitant]
     Route: 048
  31. PRAZOSIN [Concomitant]
  32. ROSUVASTATIN [Concomitant]
     Indication: BLOOD CHOLESTEROL
     Route: 048
  33. BUPROPION [Concomitant]
     Indication: SMOKING CESSATION THERAPY
     Route: 048
  34. BUPROPION [Concomitant]
     Indication: MENTAL DISORDER
     Route: 048
  35. BUPROPION [Concomitant]
     Indication: SMOKING CESSATION THERAPY
  36. BUPROPION [Concomitant]
     Indication: MENTAL DISORDER
  37. AMANTADINE [Concomitant]
     Indication: MULTIPLE SCLEROSIS
     Route: 048
  38. AMANTADINE [Concomitant]
     Indication: FATIGUE
     Route: 048
  39. AMOXICILLIN/CLAV K [Concomitant]
     Indication: INFECTION
     Route: 048
  40. ATORVASTATIN [Concomitant]
     Indication: BLOOD CHOLESTEROL
     Route: 048
  41. CLOPIDOGREL [Concomitant]
     Route: 048
  42. CLOPIDOGREL [Concomitant]
     Route: 048
  43. DOCUSATE SODIUM\SENNOSIDES [Concomitant]
     Indication: CONSTIPATION
     Route: 048
  44. NICOTINE [Concomitant]
     Indication: SMOKING CESSATION THERAPY
     Route: 061
  45. OXYCODONE/ACETAMINOPHEN [Concomitant]
     Indication: PAIN
     Route: 048
  46. SENSI-CREAM [Concomitant]
     Route: 061
  47. TERBINAFINE [Concomitant]
     Route: 061

REACTIONS (1)
  - Acute myocardial infarction [Unknown]
